FAERS Safety Report 8818292 (Version 2)
Quarter: 2013Q4

REPORT INFORMATION
  Report Type: Spontaneous
  Country: US (occurrence: US)
  Receive Date: 20121001
  Receipt Date: 20131101
  Transmission Date: 20140711
  Serious: No
  Sender: FDA-Public Use
  Company Number: US-009507513-1206USA03062

PATIENT
  Age: 57 Year
  Sex: Female

DRUGS (3)
  1. COSOPT [Suspect]
     Indication: GLAUCOMA
     Dosage: 2 MG, BID
     Route: 047
     Dates: start: 2011
  2. LUMIGAN [Concomitant]
  3. ALPHAGAN [Concomitant]

REACTIONS (3)
  - Visual acuity reduced [Not Recovered/Not Resolved]
  - Drug dose omission [Unknown]
  - Product packaging issue [Unknown]
